FAERS Safety Report 5816677-X (Version None)
Quarter: 2008Q3

REPORT INFORMATION
  Report Type: 
  Country: None (occurrence: None)
  Receive Date: 20080721
  Receipt Date: 20080710
  Transmission Date: 20090109
  Serious: Yes (Hospitalization)
  Sender: FDA-Public Use
  Company Number: ES-PFIZER INC-2008057584

PATIENT
  Age: 46 Year
  Sex: Female

DRUGS (1)
  1. AROMASIL [Suspect]
     Indication: BREAST CANCER
     Route: 048

REACTIONS (1)
  - HEPATITIS CHOLESTATIC [None]
